FAERS Safety Report 15541719 (Version 1)
Quarter: 2018Q4

REPORT INFORMATION
  Report Type: Spontaneous
  Country: US (occurrence: US)
  Receive Date: 20181017
  Receipt Date: 20181017
  Transmission Date: 20190205
  Serious: No
  Sender: FDA-Public Use
  Company Number: None

PATIENT
  Age: 35 Year
  Sex: Female

DRUGS (1)
  1. AUSTEDO [Suspect]
     Active Substance: DEUTETRABENAZINE
     Indication: DYSKINESIA
     Dates: start: 20180915

REACTIONS (3)
  - Constipation [None]
  - Tremor [None]
  - Lip disorder [None]

NARRATIVE: CASE EVENT DATE: 20181016
